FAERS Safety Report 20775569 (Version 1)
Quarter: 2022Q2

REPORT INFORMATION
  Report Type: Spontaneous
  Country: US (occurrence: None)
  Receive Date: 20220502
  Receipt Date: 20220502
  Transmission Date: 20220721
  Serious: Yes (Hospitalization)
  Sender: FDA-Public Use
  Company Number: None

PATIENT
  Age: 33 Year
  Sex: Male
  Weight: 75.6 kg

DRUGS (8)
  1. SEROQUEL [Suspect]
     Active Substance: QUETIAPINE FUMARATE
     Indication: Schizophrenia
     Dosage: FREQUENCY : DAILY;?
     Route: 048
  2. SEROQUEL [Suspect]
     Active Substance: QUETIAPINE FUMARATE
     Indication: Bipolar disorder
  3. RISPERDAL [Suspect]
     Active Substance: RISPERIDONE
  4. HALDOL [Suspect]
     Active Substance: HALOPERIDOL
  5. INVEGA [Suspect]
     Active Substance: PALIPERIDONE
  6. BENZTROPINE [Suspect]
     Active Substance: BENZTROPINE
  7. SAPHRIS [Suspect]
     Active Substance: ASENAPINE MALEATE
  8. DIAZEPAM [Suspect]
     Active Substance: DIAZEPAM

REACTIONS (2)
  - Multiple drug therapy [None]
  - Legal problem [None]

NARRATIVE: CASE EVENT DATE: 20060812
